FAERS Safety Report 20962209 (Version 1)
Quarter: 2022Q2

REPORT INFORMATION
  Report Type: Spontaneous
  Country: US (occurrence: None)
  Receive Date: 20220614
  Receipt Date: 20220614
  Transmission Date: 20220720
  Serious: No
  Sender: FDA-Public Use
  Company Number: None

PATIENT
  Sex: 0

DRUGS (2)
  1. TENOFOVIR DISOPROXIL FUMARATE [Suspect]
     Active Substance: TENOFOVIR DISOPROXIL FUMARATE
     Indication: Hepatitis B
     Dosage: FREQUENCY : DAILY;?
     Route: 048
     Dates: start: 20200617, end: 20220610
  2. Tenofovir Disoproxil 300mg [Concomitant]

REACTIONS (1)
  - Mood swings [None]

NARRATIVE: CASE EVENT DATE: 20220527
